FAERS Safety Report 8707612 (Version 2)
Quarter: 2012Q4

REPORT INFORMATION
  Report Type: Report from Study
  Country: PT (occurrence: PT)
  Receive Date: 20120805
  Receipt Date: 20121009
  Transmission Date: 20130627
  Serious: Yes (Other)
  Sender: FDA-Public Use
  Company Number: PHHY2012PT066252

PATIENT
  Age: 62 None
  Sex: Male

DRUGS (4)
  1. CERTICAN [Suspect]
     Indication: NEPHROPATHY
     Dosage: 0.25 mg, BID
     Dates: start: 20101006
  2. AZATHIOPRINE [Concomitant]
     Dosage: UNK UKN, UNK
  3. SIROLIMUS [Concomitant]
     Dosage: UNK UKN, UNK
  4. PREDNISONE [Concomitant]
     Dosage: UNK UKN, UNK

REACTIONS (3)
  - Pulmonary mass [Not Recovered/Not Resolved]
  - Hypercholesterolaemia [Not Recovered/Not Resolved]
  - Hypertension [Not Recovered/Not Resolved]
